FAERS Safety Report 25582205 (Version 1)
Quarter: 2025Q3

REPORT INFORMATION
  Report Type: Spontaneous
  Country: TR (occurrence: TR)
  Receive Date: 20250719
  Receipt Date: 20250719
  Transmission Date: 20251021
  Serious: Yes (Death, Life-Threatening, Other)
  Sender: AMGEN
  Company Number: TR-AMGEN-TURSP2025140157

PATIENT

DRUGS (4)
  1. PANITUMUMAB [Suspect]
     Active Substance: PANITUMUMAB
     Indication: Colorectal cancer metastatic
     Route: 065
  2. BEVACIZUMAB [Suspect]
     Active Substance: BEVACIZUMAB
     Indication: Colorectal cancer metastatic
     Route: 065
  3. LEUCOVORIN [Suspect]
     Active Substance: LEUCOVORIN\LEUCOVORIN CALCIUM
     Indication: Colorectal cancer metastatic
     Dosage: 400 MILLIGRAM/SQ. METER, Q2WK
     Route: 040
  4. FLUOROURACIL [Suspect]
     Active Substance: FLUOROURACIL
     Indication: Colorectal cancer metastatic
     Route: 040

REACTIONS (18)
  - Death [Fatal]
  - Pulmonary toxicity [Fatal]
  - Hypomagnesaemia [Fatal]
  - Constipation [Fatal]
  - Skin toxicity [Fatal]
  - Neutropenia [Unknown]
  - Ocular toxicity [Unknown]
  - Interstitial lung disease [Unknown]
  - Colorectal cancer metastatic [Unknown]
  - Febrile neutropenia [Unknown]
  - Neuropathy peripheral [Unknown]
  - Nephropathy toxic [Unknown]
  - Anaemia [Unknown]
  - Thrombocytopenia [Unknown]
  - Nausea [Unknown]
  - Therapy partial responder [Unknown]
  - Diarrhoea [Unknown]
  - Liver disorder [Unknown]
